FAERS Safety Report 13815585 (Version 1)
Quarter: 2017Q3

REPORT INFORMATION
  Report Type: Spontaneous
  Country: US (occurrence: US)
  Receive Date: 20170731
  Receipt Date: 20170731
  Transmission Date: 20171127
  Serious: Yes (Other)
  Sender: FDA-Public Use
  Company Number: US-LPDUSPRD-20171064

PATIENT

DRUGS (2)
  1. DOPAMINE HCL [Suspect]
     Active Substance: DOPAMINE HYDROCHLORIDE
     Dosage: UNKNOWN
     Route: 042
  2. DOBUTAMINE [Suspect]
     Active Substance: DOBUTAMINE\DOBUTAMINE HYDROCHLORIDE
     Dosage: UNKNOWN
     Route: 042

REACTIONS (1)
  - False negative investigation result [Unknown]
